FAERS Safety Report 21512690 (Version 2)
Quarter: 2022Q4

REPORT INFORMATION
  Report Type: Report from Study
  Country: US (occurrence: US)
  Receive Date: 20221027
  Receipt Date: 20221119
  Transmission Date: 20230112
  Serious: Yes (Other)
  Sender: FDA-Public Use
  Company Number: US-ABBVIE-22K-163-4437655-00

PATIENT
  Sex: Female

DRUGS (5)
  1. HUMIRA [Suspect]
     Active Substance: ADALIMUMAB
     Indication: Psoriasis
     Dosage: 0.4ML, CITRATE FREE
     Route: 058
     Dates: start: 202110
  2. HUMIRA [Suspect]
     Active Substance: ADALIMUMAB
     Indication: Rheumatoid arthritis
     Dosage: CITRATE FREE?FORM STRENGTH WAS 40 MILLIGRAMS,
     Route: 058
     Dates: start: 2022, end: 2022
  3. HUMIRA [Suspect]
     Active Substance: ADALIMUMAB
     Dosage: CITRATE FREE?FORM STRENGTH WAS 40 MILLIGRAMS
     Route: 058
     Dates: start: 2022
  4. AMLODIPINE BESYLATE [Concomitant]
     Active Substance: AMLODIPINE BESYLATE
     Indication: Product used for unknown indication
  5. HYDROCHLOROTHIAZIDE [Concomitant]
     Active Substance: HYDROCHLOROTHIAZIDE
     Indication: Product used for unknown indication

REACTIONS (9)
  - Surgery [Unknown]
  - Vocal cord polyp [Unknown]
  - Therapeutic product effect incomplete [Unknown]
  - Dry mouth [Unknown]
  - Therapeutic product effect decreased [Unknown]
  - Dysphonia [Unknown]
  - Arthralgia [Unknown]
  - Joint swelling [Unknown]
  - Sinusitis [Unknown]
